FAERS Safety Report 7495730-1 (Version None)
Quarter: 2011Q2

REPORT INFORMATION
  Report Type: 
  Country: None (occurrence: None)
  Receive Date: 20110523
  Receipt Date: 20110519
  Transmission Date: 20111010
  Serious: Yes (Other)
  Sender: FDA-Public Use
  Company Number: JP-EISAI INC-E2020-08602-SPO-JP

PATIENT
  Age: 55 Year
  Sex: Male

DRUGS (3)
  1. ARICEPT [Suspect]
     Route: 048
     Dates: start: 20100826, end: 20110203
  2. ARICEPT [Suspect]
     Indication: DEMENTIA ALZHEIMER'S TYPE
     Route: 048
     Dates: start: 20100521, end: 20100601
  3. ARICEPT [Suspect]
     Route: 048
     Dates: start: 20100601, end: 20100825

REACTIONS (3)
  - RHABDOMYOLYSIS [None]
  - MYOGLOBIN BLOOD INCREASED [None]
  - BLOOD CREATINE PHOSPHOKINASE INCREASED [None]
